FAERS Safety Report 10188806 (Version 1)
Quarter: 2014Q2

REPORT INFORMATION
  Report Type: Spontaneous
  Country: US (occurrence: None)
  Receive Date: 20140521
  Receipt Date: 20140521
  Transmission Date: 20141212
  Serious: No
  Sender: FDA-Public Use
  Company Number: None

PATIENT
  Age: 54 Year
  Sex: Female

DRUGS (1)
  1. STIVARGA [Suspect]
     Indication: COLON CANCER
     Route: 048
     Dates: start: 20140219, end: 20140331

REACTIONS (5)
  - Rash [None]
  - Diarrhoea [None]
  - Vomiting [None]
  - Peripheral swelling [None]
  - Peripheral swelling [None]
